FAERS Safety Report 24917531 (Version 1)
Quarter: 2025Q1

REPORT INFORMATION
  Report Type: Spontaneous
  Country: CN (occurrence: CN)
  Receive Date: 20250203
  Receipt Date: 20250203
  Transmission Date: 20250409
  Serious: Yes (Hospitalization)
  Sender: BAYER HEALTHCARE PHARMACEUTICALS INC.
  Company Number: CN-BAYER-2025A010949

PATIENT
  Age: 59 Year
  Sex: Female

DRUGS (2)
  1. STIVARGA [Suspect]
     Active Substance: REGORAFENIB MONOHYDRATE
     Indication: Rectal cancer
     Dosage: 160 MG, QD
     Route: 048
     Dates: start: 20240617, end: 20250102
  2. STIVARGA [Suspect]
     Active Substance: REGORAFENIB MONOHYDRATE
     Indication: Targeted cancer therapy

REACTIONS (6)
  - Hepatic failure [Not Recovered/Not Resolved]
  - Jaundice [None]
  - Metastases to liver [None]
  - Fat intolerance [None]
  - Asthenia [None]
  - Abdominal distension [None]

NARRATIVE: CASE EVENT DATE: 20250102
